FAERS Safety Report 4877496-4 (Version None)
Quarter: 2006Q1

REPORT INFORMATION
  Report Type: 
  Country: None (occurrence: None)
  Receive Date: 20060109
  Receipt Date: 20060109
  Transmission Date: 20060701
  Serious: Yes (Life-Threatening)
  Sender: FDA-Public Use
  Company Number: None

PATIENT
  Sex: Female
  Weight: 102 kg

DRUGS (4)
  1. AMPICILLIN AND SULBACTAM [Suspect]
     Indication: ABSCESS NECK
     Dosage: 3 G Q 6 HRS
     Dates: start: 20051106
  2. AMPICILLIN AND SULBACTAM [Suspect]
     Indication: CELLULITIS
     Dosage: 3 G Q 6 HRS
     Dates: start: 20051106
  3. AMPICILLIN AND SULBACTAM [Suspect]
     Indication: ABSCESS NECK
     Dosage: 3 G Q 6 HRS
     Dates: start: 20051114
  4. AMPICILLIN AND SULBACTAM [Suspect]
     Indication: CELLULITIS
     Dosage: 3 G Q 6 HRS
     Dates: start: 20051114

REACTIONS (3)
  - BLISTER [None]
  - RASH GENERALISED [None]
  - SKIN EXFOLIATION [None]
